FAERS Safety Report 8088181-2 (Version None)
Quarter: 2012Q1

REPORT INFORMATION
  Report Type: 
  Country: None (occurrence: None)
  Receive Date: 20120131
  Receipt Date: 20120124
  Transmission Date: 20120608
  Serious: No
  Sender: FDA-Public Use
  Company Number: US-BIOGENIDEC-2012BI002864

PATIENT
  Age: 56 Year
  Sex: Female

DRUGS (4)
  1. REMERON [Concomitant]
     Indication: DEPRESSION
  2. REMERON [Concomitant]
     Indication: INSOMNIA
  3. ADDERALL 5 [Concomitant]
     Indication: FATIGUE
  4. TYSABRI [Suspect]
     Indication: MULTIPLE SCLEROSIS
     Route: 042
     Dates: start: 20111109

REACTIONS (1)
  - WEIGHT INCREASED [None]
